FAERS Safety Report 8074836-2 (Version None)
Quarter: 2012Q1

REPORT INFORMATION
  Report Type: 
  Country: None (occurrence: None)
  Receive Date: 20120126
  Receipt Date: 20120117
  Transmission Date: 20120608
  Serious: Yes (Other)
  Sender: FDA-Public Use
  Company Number: US-ASTRAZENECA-2012SE01521

PATIENT
  Age: 86 Year
  Sex: Female

DRUGS (1)
  1. NEXIUM [Suspect]
     Route: 048

REACTIONS (3)
  - NEOPLASM MALIGNANT [None]
  - HERNIA [None]
  - GASTROOESOPHAGEAL REFLUX DISEASE [None]
